FAERS Safety Report 11744905 (Version 1)
Quarter: 2015Q4

REPORT INFORMATION
  Report Type: Spontaneous
  Country: US (occurrence: US)
  Receive Date: 20151117
  Receipt Date: 20151117
  Transmission Date: 20160304
  Serious: Yes (Other)
  Sender: FDA-Public Use
  Company Number: US-AMGEN-USASP2015120427

PATIENT
  Sex: Male

DRUGS (2)
  1. ENBREL [Suspect]
     Active Substance: ETANERCEPT
     Indication: PRODUCT USED FOR UNKNOWN INDICATION
     Dosage: 50 ML, UNK
     Route: 065
     Dates: start: 2008
  2. ENBREL [Suspect]
     Active Substance: ETANERCEPT
     Dosage: TWO 50 ML, QWK
     Route: 065

REACTIONS (9)
  - Malaise [Unknown]
  - Pallor [Unknown]
  - Weight decreased [Unknown]
  - Asthenia [Unknown]
  - Hypoaesthesia [Recovering/Resolving]
  - Sensory loss [Recovering/Resolving]
  - Psoriatic arthropathy [Unknown]
  - Nervous system disorder [Unknown]
  - Paraesthesia [Recovering/Resolving]

NARRATIVE: CASE EVENT DATE: 200905
